FAERS Safety Report 9374978 (Version 1)
Quarter: 2013Q2

REPORT INFORMATION
  Report Type: Spontaneous
  Country: US (occurrence: US)
  Receive Date: 20130628
  Receipt Date: 20130628
  Transmission Date: 20140414
  Serious: Yes (Hospitalization)
  Sender: FDA-Public Use
  Company Number: PHEH2013US013866

PATIENT
  Age: 44 Year
  Sex: Male

DRUGS (1)
  1. FANAPT [Suspect]
     Dosage: 8 MG, BID
     Route: 048
     Dates: start: 20120801, end: 20130501

REACTIONS (2)
  - General physical health deterioration [Unknown]
  - Platelet count decreased [Unknown]
